FAERS Safety Report 4278073-9 (Version None)
Quarter: 2004Q1

REPORT INFORMATION
  Report Type: 
  Country: None (occurrence: None)
  Receive Date: 20040121
  Receipt Date: 20040120
  Transmission Date: 20041129
  Serious: No
  Sender: FDA-Public Use
  Company Number: 7173

PATIENT
  Age: 45 Year
  Sex: Female

DRUGS (6)
  1. METHOTREXATE [Suspect]
     Indication: RHEUMATOID ARTHRITIS
  2. ETHAMBUTOL HCL [Concomitant]
  3. PYRAZINAMIDE [Concomitant]
  4. RIFAMPICIN [Concomitant]
  5. STREPTOMYCIN [Concomitant]
  6. ISONIAZID [Concomitant]

REACTIONS (3)
  - DISSEMINATED TUBERCULOSIS [None]
  - LIVER FUNCTION TEST ABNORMAL [None]
  - SYSTEMIC LUPUS ERYTHEMATOSUS [None]
